FAERS Safety Report 25606370 (Version 1)
Quarter: 2025Q3

REPORT INFORMATION
  Report Type: Spontaneous
  Country: US (occurrence: US)
  Receive Date: 20250725
  Receipt Date: 20250725
  Transmission Date: 20251021
  Serious: No
  Sender: RECORDATI
  Company Number: US-RECORDATI RARE DISEASE INC.-2024007015

PATIENT

DRUGS (2)
  1. SYLVANT [Suspect]
     Active Substance: SILTUXIMAB
     Indication: Product used for unknown indication
  2. SYLVANT [Suspect]
     Active Substance: SILTUXIMAB

REACTIONS (2)
  - Oedema peripheral [Unknown]
  - Abdominal pain upper [Unknown]
